FAERS Safety Report 23807195 (Version 1)
Quarter: 2024Q2

REPORT INFORMATION
  Report Type: Report from Study
  Country: CA (occurrence: CA)
  Receive Date: 20240502
  Receipt Date: 20240502
  Transmission Date: 20240715
  Serious: Yes (Hospitalization)
  Sender: FDA-Public Use
  Company Number: CA-Eisai-EC-2024-164925

PATIENT
  Age: 37 Year
  Sex: Female

DRUGS (1)
  1. LENVIMA [Suspect]
     Active Substance: LENVATINIB
     Indication: Thymic carcinoma
     Route: 048
     Dates: start: 20240222, end: 202404

REACTIONS (5)
  - Loss of consciousness [Unknown]
  - Confusional state [Unknown]
  - Decreased appetite [Unknown]
  - Tongue discomfort [Unknown]
  - Skin burning sensation [Unknown]

NARRATIVE: CASE EVENT DATE: 20240101
